FAERS Safety Report 5493044-2 (Version None)
Quarter: 2007Q4

REPORT INFORMATION
  Report Type: 
  Country: None (occurrence: None)
  Receive Date: 20071017
  Receipt Date: 20070625
  Transmission Date: 20080405
  Serious: Yes (Other)
  Sender: FDA-Public Use
  Company Number: 2007332794

PATIENT

DRUGS (1)
  1. ROLAIDS [Suspect]
     Indication: MINERAL SUPPLEMENTATION
     Dosage: DAILY AS RECOMMENDED, PLACENTAL
     Route: 053

REACTIONS (4)
  - DRUG EXPOSURE DURING PREGNANCY [None]
  - GASTRIC DISORDER [None]
  - UNDERWEIGHT [None]
  - VOMITING [None]
